FAERS Safety Report 4415166-7 (Version None)
Quarter: 2004Q3

REPORT INFORMATION
  Report Type: 
  Country: None (occurrence: None)
  Receive Date: 20040804
  Receipt Date: 20040726
  Transmission Date: 20050211
  Serious: Yes (Hospitalization)
  Sender: FDA-Public Use
  Company Number: JP-MERCK-0407USA02542

PATIENT
  Age: 82 Year
  Sex: Male

DRUGS (8)
  1. AMLODIN [Concomitant]
     Route: 048
     Dates: start: 20040704, end: 20040712
  2. PEPCID RPD [Suspect]
     Route: 048
     Dates: start: 20040501, end: 20040503
  3. PEPCID RPD [Suspect]
     Route: 048
     Dates: start: 20040602, end: 20040606
  4. PEPCID RPD [Suspect]
     Route: 048
     Dates: start: 20040627, end: 20040703
  5. LASIX [Concomitant]
     Route: 048
     Dates: start: 20040704, end: 20040712
  6. FRANDOL TAPE S [Concomitant]
     Route: 048
     Dates: start: 20040704, end: 20040712
  7. PURSENNID [Concomitant]
     Route: 048
     Dates: start: 20040627, end: 20040703
  8. SELBEX [Concomitant]
     Route: 048
     Dates: start: 20040704

REACTIONS (1)
  - NEPHRITIS INTERSTITIAL [None]
